FAERS Safety Report 8409820-X (Version None)
Quarter: 2012Q2

REPORT INFORMATION
  Report Type: 
  Country: None (occurrence: None)
  Receive Date: 20120605
  Receipt Date: 20120529
  Transmission Date: 20120825
  Serious: No
  Sender: FDA-Public Use
  Company Number: US-PFIZER INC-2012114510

PATIENT

DRUGS (1)
  1. XALATAN [Suspect]
     Dosage: UNK
     Dates: start: 20070101

REACTIONS (1)
  - BRONCHITIS [None]
